FAERS Safety Report 6293225-4 (Version None)
Quarter: 2009Q3

REPORT INFORMATION
  Report Type: 
  Country: None (occurrence: None)
  Receive Date: 20090731
  Receipt Date: 20090722
  Transmission Date: 20100115
  Serious: Yes (Hospitalization, Other)
  Sender: FDA-Public Use
  Company Number: US-ELI_LILLY_AND_COMPANY-US200907004859

PATIENT
  Age: 61 Year
  Sex: Female

DRUGS (4)
  1. FORTEO [Suspect]
     Dosage: 20 UG, DAILY (1/D)
  2. FOSAMAX [Concomitant]
  3. PHENOBARBITAL [Concomitant]
  4. KEPPRA [Concomitant]

REACTIONS (3)
  - FALL [None]
  - HIP FRACTURE [None]
  - KNEE ARTHROPLASTY [None]
